FAERS Safety Report 4504842-3 (Version None)
Quarter: 2004Q3

REPORT INFORMATION
  Report Type: 
  Country: None (occurrence: None)
  Receive Date: 20040927
  Receipt Date: 20040811
  Transmission Date: 20050211
  Serious: No
  Sender: FDA-Public Use
  Company Number: USA040875228

PATIENT
  Age: 16 Year
  Sex: Male
  Weight: 73 kg

DRUGS (1)
  1. STRATTERA [Suspect]
     Indication: ATTENTION DEFICIT/HYPERACTIVITY DISORDER
     Dosage: 80 MG DAY
     Dates: start: 20040721

REACTIONS (10)
  - ABNORMAL DREAMS [None]
  - ANOREXIA [None]
  - CHILLS [None]
  - HYPERHIDROSIS [None]
  - INITIAL INSOMNIA [None]
  - MIDDLE INSOMNIA [None]
  - NIGHTMARE [None]
  - POSTNASAL DRIP [None]
  - SOMNOLENCE [None]
  - STOMACH DISCOMFORT [None]
